FAERS Safety Report 20004300 (Version 1)
Quarter: 2021Q4

REPORT INFORMATION
  Report Type: Spontaneous
  Country: US (occurrence: US)
  Receive Date: 20211028
  Receipt Date: 20211028
  Transmission Date: 20220303
  Serious: No
  Sender: FDA-Public Use
  Company Number: US-JNJFOC-20211031430

PATIENT
  Age: 23 Year
  Sex: Female

DRUGS (1)
  1. STELARA [Suspect]
     Active Substance: USTEKINUMAB
     Indication: Colitis ulcerative
     Route: 058

REACTIONS (6)
  - Language disorder [Unknown]
  - Urticaria [Unknown]
  - Pruritus [Unknown]
  - Rash erythematous [Not Recovered/Not Resolved]
  - Rash [Unknown]
  - Nasal congestion [Unknown]
